FAERS Safety Report 6430257-7 (Version None)
Quarter: 2009Q4

REPORT INFORMATION
  Report Type: 
  Country: None (occurrence: None)
  Receive Date: 20091104
  Receipt Date: 20091104
  Transmission Date: 20100525
  Serious: Yes (Hospitalization)
  Sender: FDA-Public Use
  Company Number: None

PATIENT
  Age: 46 Year
  Sex: Female
  Weight: 95.1 kg

DRUGS (7)
  1. TAMIFLU [Suspect]
     Indication: H1N1 INFLUENZA
     Dosage: 150 MG BID PO
     Route: 048
     Dates: start: 20090916, end: 20090921
  2. TAMIFLU [Suspect]
     Indication: VIRAL TEST POSITIVE
     Dosage: 150 MG BID PO
     Route: 048
     Dates: start: 20090916, end: 20090921
  3. FOSPHENYTOIN [Suspect]
     Indication: CONVULSION
     Dosage: 100 MG Q8HR IV BOLUS
     Route: 040
     Dates: start: 20090915, end: 20090923
  4. KEPPRA [Concomitant]
  5. ZOSYN [Concomitant]
  6. ACYCLOVIR [Suspect]
  7. PROTONIX [Concomitant]

REACTIONS (5)
  - DERMATITIS BULLOUS [None]
  - H1N1 INFLUENZA [None]
  - SKIN DISCOLOURATION [None]
  - SKIN GRAFT [None]
  - SKIN NECROSIS [None]
